FAERS Safety Report 9386161 (Version 1)
Quarter: 2013Q3

REPORT INFORMATION
  Report Type: Spontaneous
  Country: None (occurrence: US)
  Receive Date: 20130707
  Receipt Date: 20130707
  Transmission Date: 20140515
  Serious: No
  Sender: FDA-Public Use
  Company Number: US-ALLERGAN-1306247US

PATIENT
  Age: 82 Year
  Sex: Male

DRUGS (3)
  1. LUMIGAN? 0.01% [Suspect]
     Indication: PRODUCT USED FOR UNKNOWN INDICATION
     Dosage: 2 GTT, QHS
     Route: 047
     Dates: start: 201210
  2. LUMIGAN? 0.01% [Suspect]
     Dosage: 2 GTT, QHS
     Route: 047
     Dates: start: 201210
  3. AZOPT [Concomitant]
     Indication: PRODUCT USED FOR UNKNOWN INDICATION

REACTIONS (4)
  - Drug ineffective [Unknown]
  - Instillation site pain [Recovered/Resolved]
  - Eye pain [Recovered/Resolved]
  - Instillation site pain [Recovered/Resolved]
